FAERS Safety Report 24120628 (Version 1)
Quarter: 2024Q3

REPORT INFORMATION
  Report Type: Spontaneous
  Country: US (occurrence: None)
  Receive Date: 20240720
  Receipt Date: 20240720
  Transmission Date: 20241017
  Serious: Yes (Life-Threatening)
  Sender: Public
  Company Number: None

PATIENT
  Age: 46 Year
  Sex: Male
  Weight: 68.49 kg

DRUGS (11)
  1. ALECENSA [Suspect]
     Active Substance: ALECTINIB HYDROCHLORIDE
     Indication: Lung neoplasm malignant
     Dosage: FREQUENCY : TWICE A DAY;?
     Route: 048
     Dates: start: 20210608, end: 20240718
  2. PANTOPRAZOLE [Concomitant]
  3. BUSPIRONE [Concomitant]
  4. FAMOTIDINE [Concomitant]
  5. HYDROMORPHONE HCL [Concomitant]
     Active Substance: HYDROMORPHONE HYDROCHLORIDE
  6. LORAZEPAM [Concomitant]
  7. MECLIZINE [Concomitant]
  8. PROCHLORPERAZINE [Concomitant]
  9. DEXAMETHASONE [Concomitant]
  10. GABAPENTIN [Concomitant]
  11. MORPHINE SULFATE [Concomitant]

REACTIONS (3)
  - Drug ineffective [None]
  - Malignant neoplasm progression [None]
  - Therapy change [None]

NARRATIVE: CASE EVENT DATE: 20240719
